FAERS Safety Report 12679849 (Version 1)
Quarter: 2016Q3

REPORT INFORMATION
  Report Type: Spontaneous
  Country: US (occurrence: US)
  Receive Date: 20160824
  Receipt Date: 20160824
  Transmission Date: 20161109
  Serious: No
  Sender: FDA-Public Use
  Company Number: US-JNJFOC-20160611049

PATIENT
  Age: 5 Year
  Sex: Male

DRUGS (2)
  1. GRISEOFULVIN. [Concomitant]
     Active Substance: GRISEOFULVIN
     Indication: TINEA INFECTION
     Route: 048
     Dates: start: 20160510
  2. KETOCONAZOLE. [Suspect]
     Active Substance: KETOCONAZOLE
     Indication: TINEA INFECTION
     Dosage: ONE APPLICATION
     Route: 061
     Dates: start: 20160510

REACTIONS (6)
  - Skin exfoliation [Unknown]
  - Application site pain [Not Recovered/Not Resolved]
  - Application site scab [Unknown]
  - Product use issue [Unknown]
  - Drug ineffective for unapproved indication [Unknown]
  - Off label use [Unknown]

NARRATIVE: CASE EVENT DATE: 20160510
